FAERS Safety Report 9698738 (Version 1)
Quarter: 2013Q4

REPORT INFORMATION
  Report Type: Spontaneous
  Country: CA (occurrence: None)
  Receive Date: 20131118
  Receipt Date: 20131118
  Transmission Date: 20140711
  Serious: Yes (Other)
  Sender: FDA-Public Use
  Company Number: SYM-2013-12762

PATIENT
  Age: 68 Year
  Sex: Male
  Weight: 81.65 kg

DRUGS (1)
  1. ZYCLARA [Suspect]
     Indication: PRODUCT USED FOR UNKNOWN INDICATION
     Dosage: 1 IN 1 D, TOPICAL?
     Route: 061

REACTIONS (9)
  - Activities of daily living impaired [None]
  - Decreased appetite [None]
  - Fatigue [None]
  - Insomnia [None]
  - Malaise [None]
  - Nausea [None]
  - Diarrhoea [None]
  - Skin lesion [None]
  - Vomiting [None]
